FAERS Safety Report 11008270 (Version 1)
Quarter: 2015Q1

REPORT INFORMATION
  Report Type: Spontaneous
  Country: US (occurrence: None)
  Receive Date: 20150313
  Receipt Date: 20150313
  Transmission Date: 20150721
  Serious: Yes (Life-Threatening, Other)
  Sender: FDA-Public Use
  Company Number: GNE282607

PATIENT
  Age: 38 Year
  Sex: Female
  Weight: 96.16 kg

DRUGS (18)
  1. PREDNISONE (PREDNISONE) [Concomitant]
     Active Substance: PREDNISONE
  2. ANTIVERT [Concomitant]
     Active Substance: MECLIZINE HYDROCHLORIDE
  3. VENTOLIN (SALBUTAMOL SULFATE) [Concomitant]
  4. AVAPRO (IRBESARTAN) (150 MG, TABLET) [Concomitant]
  5. OVAR (BECLOMETASONE DIPROPIONATE) [Concomitant]
  6. XOLAIR [Suspect]
     Active Substance: OMALIZUMAB
     Indication: ASTHMA
     Dosage: 225 MG, 1 IN 2 WK
     Route: 058
     Dates: start: 200805
  7. SINGULAIR [Concomitant]
     Active Substance: MONTELUKAST SODIUM
  8. SPIRIVA (TIOTROPIUM BROMIDE) [Concomitant]
  9. XANAX [Concomitant]
     Active Substance: ALPRAZOLAM
  10. VICODIN (HYDROCODONE TARTRATE) [Concomitant]
  11. LEVOTHYROXINE (LEVOTHYROXINE) [Concomitant]
     Active Substance: LEVOTHYROXINE
  12. ADVAIR DISKUS [Concomitant]
     Active Substance: FLUTICASONE PROPIONATE\SALMETEROL XINAFOATE
  13. HCTZ (HYDROCHLOROTHIAZIDE) (TABLET) [Concomitant]
  14. CYMBALTA (DULOXETINE HYDROCHLORIDE) (TABLET) [Concomitant]
  15. TRAMADOL HYDROCHLORIDE. [Concomitant]
     Active Substance: TRAMADOL HYDROCHLORIDE
  16. NORTRIPTYLINE (NORTRIPTYLINE) [Concomitant]
     Active Substance: NORTRIPTYLINE
  17. SKELAXIN (METAXALONE) [Concomitant]
  18. SYNTHROID [Concomitant]
     Active Substance: LEVOTHYROXINE SODIUM

REACTIONS (2)
  - Wheezing [None]
  - Dyspnoea [None]

NARRATIVE: CASE EVENT DATE: 20090401
